FAERS Safety Report 4555017-3 (Version None)
Quarter: 2004Q4

REPORT INFORMATION
  Report Type: 
  Country: None (occurrence: None)
  Receive Date: 20041217
  Receipt Date: 20040827
  Transmission Date: 20050328
  Serious: No
  Sender: FDA-Public Use
  Company Number: 2004-BP-06141BP

PATIENT
  Age: 73 Year
  Sex: Male

DRUGS (12)
  1. SPIRIVA [Suspect]
     Indication: CHRONIC OBSTRUCTIVE AIRWAYS DISEASE
     Dosage: 18 MCG (18 MCG, 18 MCG DAILY) IH
     Route: 055
     Dates: start: 20040501
  2. ALBUTEROL [Concomitant]
  3. XOPENEX [Concomitant]
  4. ATIVAN [Concomitant]
  5. FLONASE [Concomitant]
  6. HUMABID [Concomitant]
  7. PREDNISONE [Concomitant]
  8. BEMADOX [Concomitant]
  9. LIPITOR [Concomitant]
  10. VIOXX [Concomitant]
  11. CIPRO [Concomitant]
  12. ADVAIR (SERETIDE MITE) [Concomitant]

REACTIONS (1)
  - HEART RATE INCREASED [None]
